FAERS Safety Report 19111716 (Version 3)
Quarter: 2021Q4

REPORT INFORMATION
  Report Type: Spontaneous
  Country: US (occurrence: US)
  Receive Date: 20210408
  Receipt Date: 20211119
  Transmission Date: 20220303
  Serious: Yes (Other)
  Sender: FDA-Public Use
  Company Number: US-MALLINCKRODT PHARMACEUTICALS-T202101467

PATIENT
  Sex: Female

DRUGS (4)
  1. H.P. ACTHAR [Suspect]
     Active Substance: CORTICOTROPIN
     Indication: Iridocyclitis
     Dosage: 80 UNITS/1 MILLILITER, EVERY 72 HOURS, AS DIRECTED
     Route: 058
     Dates: start: 202103, end: 202110
  2. H.P. ACTHAR [Suspect]
     Active Substance: CORTICOTROPIN
     Indication: Chorioretinitis
  3. H.P. ACTHAR [Suspect]
     Active Substance: CORTICOTROPIN
     Indication: Sympathetic ophthalmia
  4. COPAXONE [Suspect]
     Active Substance: GLATIRAMER ACETATE
     Indication: Product used for unknown indication
     Dosage: UNK
     Route: 065

REACTIONS (5)
  - Choking [Unknown]
  - Surgery [Unknown]
  - Injection site pain [Unknown]
  - Injection site bruising [Unknown]
  - Injection site mass [Unknown]

NARRATIVE: CASE EVENT DATE: 20210101
